FAERS Safety Report 9590022 (Version 1)
Quarter: 2013Q4

REPORT INFORMATION
  Report Type: Spontaneous
  Country: US (occurrence: US)
  Receive Date: 20131003
  Receipt Date: 20131003
  Transmission Date: 20140711
  Serious: No
  Sender: FDA-Public Use
  Company Number: US-AMGEN-USASP2012074637

PATIENT
  Sex: Female
  Weight: 99.77 kg

DRUGS (14)
  1. ENBREL [Suspect]
     Indication: PRODUCT USED FOR UNKNOWN INDICATION
     Dosage: 50 MG, QWK
     Route: 058
  2. HUMIRA [Concomitant]
     Dosage: UNK
  3. CELEBREX [Concomitant]
     Dosage: 100 MG, UNK
  4. LEUCOVORIN CA [Concomitant]
     Dosage: 10 MG, UNK
  5. METHOTREXATE [Concomitant]
     Dosage: 2.5 MG, UNK
  6. HYDROXYCHLOROQUINE [Concomitant]
     Dosage: 200 MG, UNK
  7. FOLIC ACID [Concomitant]
     Dosage: 1 MG, UNK
  8. FELODIPINE [Concomitant]
     Dosage: 2.5 MG, UNK
  9. BIOTIN [Concomitant]
     Dosage: 10 MG, UNK
  10. VITAMIN D                          /00107901/ [Concomitant]
     Dosage: 1000 IU, UNK
  11. CALCIUM                            /07362503/ [Concomitant]
     Dosage: 500 UNK, UNK
  12. GLUCOSAMINE [Concomitant]
     Dosage: UNK
  13. MULTIVITAMINS, PLAIN [Concomitant]
     Dosage: UNK
  14. VITAMIN B6 [Concomitant]
     Dosage: 250 MG, UNK

REACTIONS (1)
  - Therapeutic response decreased [Unknown]
